FAERS Safety Report 7118817-1 (Version None)
Quarter: 2010Q4

REPORT INFORMATION
  Report Type: 
  Country: None (occurrence: None)
  Receive Date: 20101123
  Receipt Date: 20100804
  Transmission Date: 20110411
  Serious: No
  Sender: FDA-Public Use
  Company Number: US-KINGPHARMUSA00001-K201000992

PATIENT
  Age: 67 Year
  Sex: Female

DRUGS (3)
  1. FLECTOR [Suspect]
     Indication: INFLAMMATORY PAIN
     Dosage: UNK PATCH, UNK
     Route: 061
  2. FLECTOR [Suspect]
     Indication: PAIN IN EXTREMITY
  3. CHOLESTEROL- AND TRIGLYCERIDE REDUCERS [Concomitant]
     Indication: BLOOD CHOLESTEROL INCREASED

REACTIONS (1)
  - OROPHARYNGEAL PAIN [None]
